FAERS Safety Report 6342095-4 (Version None)
Quarter: 2009Q3

REPORT INFORMATION
  Report Type: 
  Country: None (occurrence: None)
  Receive Date: 20090904
  Receipt Date: 20090904
  Transmission Date: 20100115
  Serious: Yes (Hospitalization)
  Sender: FDA-Public Use
  Company Number: None

PATIENT
  Sex: Female
  Weight: 62 kg

DRUGS (1)
  1. INTRON A [Suspect]
     Dosage: 170 MILLION IU

REACTIONS (1)
  - VULVOVAGINAL MYCOTIC INFECTION [None]
